FAERS Safety Report 21102829 (Version 1)
Quarter: 2022Q3

REPORT INFORMATION
  Report Type: Other
  Country: CA (occurrence: CA)
  Receive Date: 20220720
  Receipt Date: 20220720
  Transmission Date: 20221027
  Serious: Yes (Hospitalization, Other)
  Sender: FDA-Public Use
  Company Number: CA-TOLMAR, INC.-22CA035367

PATIENT
  Age: 73 Year
  Sex: Male
  Weight: 84 kg

DRUGS (5)
  1. ELIGARD [Suspect]
     Active Substance: LEUPROLIDE ACETATE
     Indication: Prostate cancer
     Dosage: 22.5 MILLIGRAM, Q 3 MONTH
     Route: 058
     Dates: start: 20161129, end: 20170810
  2. ENZALUTAMIDE [Suspect]
     Active Substance: ENZALUTAMIDE
     Indication: Prostate cancer
     Dosage: UNK, QD
     Route: 048
     Dates: start: 20161129, end: 20170810
  3. CALCIUM [Concomitant]
     Active Substance: CALCIUM
     Indication: Prostate cancer
     Dosage: UNK
     Route: 048
     Dates: start: 20170115, end: 20171120
  4. ERGOCALCIFEROL [Concomitant]
     Active Substance: ERGOCALCIFEROL
     Indication: Prostate cancer
     Dosage: UNK
     Dates: start: 20170115
  5. MAGNESIUM [Concomitant]
     Active Substance: MAGNESIUM
     Indication: Prostate cancer
     Dosage: UNK
     Route: 048
     Dates: start: 20170115

REACTIONS (2)
  - Second primary malignancy [Recovered/Resolved]
  - Colorectal adenoma [Recovered/Resolved]

NARRATIVE: CASE EVENT DATE: 20170905
